FAERS Safety Report 8396149-1 (Version None)
Quarter: 2012Q2

REPORT INFORMATION
  Report Type: 
  Country: None (occurrence: None)
  Receive Date: 20120530
  Receipt Date: 20120522
  Transmission Date: 20120825
  Serious: Yes (Congenital Anomaly)
  Sender: FDA-Public Use
  Company Number: US-GLAXOSMITHKLINE-A0979135A

PATIENT
  Sex: Male
  Weight: 3.1 kg

DRUGS (3)
  1. SUDAFED 12 HOUR [Concomitant]
  2. PAXIL [Suspect]
     Indication: POST-TRAUMATIC STRESS DISORDER
     Dosage: 20MG PER DAY
     Route: 064
  3. ALBUTEROL [Concomitant]

REACTIONS (3)
  - TALIPES [None]
  - KIDNEY ENLARGEMENT [None]
  - FOETAL EXPOSURE DURING PREGNANCY [None]
